FAERS Safety Report 20934742 (Version 1)
Quarter: 2022Q2

REPORT INFORMATION
  Report Type: Spontaneous
  Country: US (occurrence: US)
  Receive Date: 20220608
  Receipt Date: 20220608
  Transmission Date: 20220720
  Serious: No
  Sender: FDA-Public Use
  Company Number: US-SA-SAC00000000142112

PATIENT
  Age: 18 Year
  Sex: Male

DRUGS (1)
  1. ALDURAZYME [Suspect]
     Active Substance: LARONIDASE
     Indication: Mucopolysaccharidosis
     Dosage: 14.5 MG, QW
     Route: 042
     Dates: start: 20151021

REACTIONS (1)
  - Corneal transplant [Unknown]

NARRATIVE: CASE EVENT DATE: 20220418
